FAERS Safety Report 11835502 (Version 1)
Quarter: 2015Q4

REPORT INFORMATION
  Report Type: Spontaneous
  Country: US (occurrence: US)
  Receive Date: 20151215
  Receipt Date: 20151215
  Transmission Date: 20160305
  Serious: No
  Sender: FDA-Public Use
  Company Number: US-BAYER-2015-488742

PATIENT
  Age: 61 Year
  Sex: Male
  Weight: 77.98 kg

DRUGS (5)
  1. NAPROXEN. [Concomitant]
     Active Substance: NAPROXEN
  2. SALINE ORAL OTC [Concomitant]
     Active Substance: SODIUM CHLORIDE
  3. TRAMADOL. [Concomitant]
     Active Substance: TRAMADOL
  4. MIRALAX [Suspect]
     Active Substance: POLYETHYLENE GLYCOL 3350
     Indication: FLATULENCE
     Dosage: 1 DF, QD
     Route: 048
     Dates: start: 20151211
  5. HYDROCODONE [Concomitant]
     Active Substance: HYDROCODONE

REACTIONS (1)
  - Product use issue [None]
